FAERS Safety Report 19153010 (Version 3)
Quarter: 2021Q3

REPORT INFORMATION
  Report Type: Report from Study
  Country: US (occurrence: US)
  Receive Date: 20210419
  Receipt Date: 20210921
  Transmission Date: 20211014
  Serious: Yes (Hospitalization, Other)
  Sender: FDA-Public Use
  Company Number: NVSC2021US084390

PATIENT
  Age: 80 Year
  Sex: Male

DRUGS (13)
  1. JADENU [Suspect]
     Active Substance: DEFERASIROX
     Indication: IRON OVERLOAD
     Dosage: 380 MG, BID
     Route: 048
     Dates: start: 20190708
  2. LEVOCETIRIZINE [Concomitant]
     Active Substance: LEVOCETIRIZINE
     Indication: PRODUCT USED FOR UNKNOWN INDICATION
     Dosage: 5 MG, QD
     Route: 048
     Dates: start: 20200917
  3. DEMADEX [Concomitant]
     Active Substance: TORSEMIDE
     Indication: PRODUCT USED FOR UNKNOWN INDICATION
     Dosage: 20 MG, QD
     Route: 048
     Dates: start: 20200917
  4. FISH OIL [Concomitant]
     Active Substance: FISH OIL
     Indication: PRODUCT USED FOR UNKNOWN INDICATION
     Dosage: 1 DF, BID
     Route: 065
     Dates: start: 201502
  5. CENTRUM SILVER [Concomitant]
     Active Substance: MINERALS\VITAMINS
     Indication: PRODUCT USED FOR UNKNOWN INDICATION
     Dosage: 1 DF, QD
     Route: 048
     Dates: start: 201502
  6. PRO BIOTIC BLEND [Concomitant]
     Active Substance: BIFIDOBACTERIUM SPP.\BIFIDOBACTERIUM LONGUM\LACTOBACILLUS ACIDOPHILUS
     Indication: PRODUCT USED FOR UNKNOWN INDICATION
     Dosage: 1 DF, QD
     Route: 048
     Dates: start: 20190123
  7. LUSPATERCEPT. [Concomitant]
     Active Substance: LUSPATERCEPT
     Indication: PRODUCT USED FOR UNKNOWN INDICATION
     Dosage: 147 MG, 21D
     Route: 058
     Dates: start: 20200420
  8. NASACORT [Concomitant]
     Active Substance: TRIAMCINOLONE ACETONIDE
     Indication: PRODUCT USED FOR UNKNOWN INDICATION
     Dosage: 55 MCG (APPLY 2 SPRAYS TO EACH NOSTRILS DIRECTED DAILY)
     Route: 065
     Dates: start: 20190205
  9. VITAMIN D3 [Concomitant]
     Active Substance: CHOLECALCIFEROL
     Indication: PRODUCT USED FOR UNKNOWN INDICATION
     Dosage: UNK UNK, QD (STRENGTH 25 MCG/1000 IU, DOSE: 2500 UNIT)
     Route: 048
     Dates: start: 20200917
  10. JADENU [Suspect]
     Active Substance: DEFERASIROX
     Indication: ANAEMIA MACROCYTIC
     Dosage: 1800 MG, QD (3 DF IN MORNING AND 2 DF IN EVENING)
     Route: 065
     Dates: start: 20190708
  11. UROXATRAL [Concomitant]
     Active Substance: ALFUZOSIN HYDROCHLORIDE
     Indication: PRODUCT USED FOR UNKNOWN INDICATION
     Dosage: 10 MG, QD
     Route: 048
     Dates: start: 20190105
  12. VITAMIN B12 [Concomitant]
     Active Substance: CYANOCOBALAMIN
     Indication: PRODUCT USED FOR UNKNOWN INDICATION
     Dosage: 1000 UG, QD
     Route: 048
  13. SYNTHROID [Concomitant]
     Active Substance: LEVOTHYROXINE SODIUM
     Indication: PRODUCT USED FOR UNKNOWN INDICATION
     Dosage: 25 UG, QD
     Route: 048

REACTIONS (11)
  - Dyspnoea [Recovered/Resolved]
  - Fatigue [Recovered/Resolved]
  - Haemoglobin decreased [Unknown]
  - Dizziness [Recovered/Resolved]
  - Glomerular filtration rate decreased [Unknown]
  - Blood calcium decreased [Unknown]
  - Blood urea increased [Unknown]
  - Blood glucose increased [Unknown]
  - Aortic stenosis [Recovered/Resolved]
  - Renal oncocytoma [Unknown]
  - Blood creatinine increased [Unknown]

NARRATIVE: CASE EVENT DATE: 20210126
